FAERS Safety Report 17151311 (Version 1)
Quarter: 2019Q4

REPORT INFORMATION
  Report Type: Spontaneous
  Country: US (occurrence: US)
  Receive Date: 20191213
  Receipt Date: 20191213
  Transmission Date: 20200122
  Serious: Yes (Other)
  Sender: FDA-Public Use
  Company Number: US-PFIZER INC-2019537731

PATIENT
  Age: 70 Year

DRUGS (1)
  1. LYRICA [Suspect]
     Active Substance: PREGABALIN
     Dosage: UNK

REACTIONS (5)
  - Suicidal ideation [Unknown]
  - Liver function test abnormal [Unknown]
  - Dizziness [Unknown]
  - Visual impairment [Unknown]
  - Mood swings [Unknown]
